FAERS Safety Report 19932515 (Version 1)
Quarter: 2021Q4

REPORT INFORMATION
  Report Type: Spontaneous
  Country: US (occurrence: US)
  Receive Date: 20211007
  Receipt Date: 20211007
  Transmission Date: 20220303
  Serious: No
  Sender: FDA-Public Use
  Company Number: None

PATIENT
  Age: 60 Year
  Sex: Male
  Weight: 95 kg

DRUGS (9)
  1. PRIVIGEN [Suspect]
     Active Substance: HUMAN IMMUNOGLOBULIN G
     Indication: Hypogammaglobulinaemia
     Dosage: ?          OTHER FREQUENCY:EVERY 4 WEEKS;
     Route: 041
     Dates: start: 20200510
  2. Acetaminophen 650 mg po [Concomitant]
  3. Diphenhydramine 25 mg po [Concomitant]
  4. allopurinol 200 mg po [Concomitant]
  5. folic acid 1 mg po [Concomitant]
  6. imbruvica 420 mg po [Concomitant]
  7. valtrex 1 gm po [Concomitant]
  8. vanclexta 100 mg po [Concomitant]
  9. vitamin C 1000 mg po [Concomitant]

REACTIONS (4)
  - Pruritus [None]
  - Urticaria [None]
  - Swelling face [None]
  - Infusion related reaction [None]

NARRATIVE: CASE EVENT DATE: 20210918
